FAERS Safety Report 4918473-4 (Version None)
Quarter: 2006Q1

REPORT INFORMATION
  Report Type: 
  Country: None (occurrence: None)
  Receive Date: 20060214
  Receipt Date: 20060124
  Transmission Date: 20060701
  Serious: Yes (Hospitalization)
  Sender: FDA-Public Use
  Company Number: ES200602000007

PATIENT
  Age: 73 Year
  Sex: Female

DRUGS (4)
  1. FORTEO [Suspect]
     Indication: OSTEOPOROSIS
     Dosage: 20 UG DAILY (1/D), SUBCUTANEOUS
     Route: 058
     Dates: start: 20050601, end: 20051207
  2. FORTEO [Concomitant]
  3. CALCIUM GLUCONATE [Concomitant]
  4. PREVENCOR (ATORVASTATIN CALCIUM) [Concomitant]

REACTIONS (1)
  - RENAL COLIC [None]
